FAERS Safety Report 9343823 (Version 3)
Quarter: 2013Q3

REPORT INFORMATION
  Report Type: Spontaneous
  Country: US (occurrence: US)
  Receive Date: 20130612
  Receipt Date: 20130905
  Transmission Date: 20140515
  Serious: Yes (Other)
  Sender: FDA-Public Use
  Company Number: US-009507513-1306USA002564

PATIENT
  Age: 75 Year
  Sex: Female

DRUGS (3)
  1. DULERA [Suspect]
     Dosage: DOSE UNSPECIFIED/ 2 PUFFS TAKEN IN OFFICE
     Route: 055
     Dates: start: 20130531, end: 20130531
  2. VALIUM [Concomitant]
  3. ZEBETA [Concomitant]

REACTIONS (4)
  - Convulsion [Recovering/Resolving]
  - Respiratory disorder [Recovering/Resolving]
  - Bronchospasm [Recovering/Resolving]
  - Blood pressure increased [Recovering/Resolving]
